FAERS Safety Report 6657384-3 (Version None)
Quarter: 2010Q1

REPORT INFORMATION
  Report Type: 
  Country: None (occurrence: None)
  Receive Date: 20100325
  Receipt Date: 20100318
  Transmission Date: 20100710
  Serious: Yes (Hospitalization, Other)
  Sender: FDA-Public Use
  Company Number: DSA_42826_2010

PATIENT
  Sex: Male

DRUGS (8)
  1. XENAZINE [Suspect]
     Indication: HUNTINGTON'S CHOREA
     Dosage: 12.5 MG TID ORAL
     Route: 048
     Dates: start: 20070801
  2. XENAZINE [Suspect]
     Indication: MOVEMENT DISORDER
     Dosage: 12.5 MG TID ORAL
     Route: 048
     Dates: start: 20070801
  3. Q-10 CO-ENZYME [Concomitant]
  4. OXCARBAZEPINE [Concomitant]
  5. VITAMIN E [Concomitant]
  6. SIMVASTATIN [Concomitant]
  7. ACIPHEX [Concomitant]
  8. XANAX [Concomitant]

REACTIONS (2)
  - SUBDURAL HAEMATOMA [None]
  - WEIGHT DECREASED [None]
